FAERS Safety Report 23326951 (Version 3)
Quarter: 2025Q1

REPORT INFORMATION
  Report Type: Spontaneous
  Country: IN (occurrence: IN)
  Receive Date: 20231221
  Receipt Date: 20250204
  Transmission Date: 20250409
  Serious: Yes (Other)
  Sender: PFIZER
  Company Number: IN-PFIZER INC-2021253436

PATIENT
  Age: 57 Year
  Sex: Female

DRUGS (2)
  1. LORLATINIB [Suspect]
     Active Substance: LORLATINIB
     Indication: Lung neoplasm malignant
     Dosage: 100 MG, 1X/DAY
     Route: 048
     Dates: start: 20210308
  2. PAN [Concomitant]
     Dosage: UNK, 1X/DAY

REACTIONS (4)
  - Blood thyroid stimulating hormone increased [Unknown]
  - Blood glucose abnormal [Unknown]
  - Neoplasm progression [Unknown]
  - Blood cholesterol increased [Unknown]
